APPROVED DRUG PRODUCT: SENSORCAINE
Active Ingredient: BUPIVACAINE HYDROCHLORIDE
Strength: 0.25%
Dosage Form/Route: INJECTABLE;INJECTION
Application: N018304 | Product #001 | TE Code: AP
Applicant: FRESENIUS KABI USA LLC
Approved: Approved Prior to Jan 1, 1982 | RLD: Yes | RS: No | Type: RX